FAERS Safety Report 15326559 (Version 2)
Quarter: 2018Q3

REPORT INFORMATION
  Report Type: Report from Study
  Country: None (occurrence: US)
  Receive Date: 20180828
  Receipt Date: 20180917
  Transmission Date: 20181010
  Serious: Yes (Hospitalization, Other)
  Sender: FDA-Public Use
  Company Number: US-ABBVIE-18K-163-2460616-00

PATIENT
  Age: 56 Year
  Sex: Male
  Weight: 104.42 kg

DRUGS (5)
  1. CINNAMON. [Concomitant]
     Active Substance: CINNAMON
     Indication: DIABETES MELLITUS INADEQUATE CONTROL
  2. GARLIC. [Concomitant]
     Active Substance: GARLIC
     Indication: BLOOD CHOLESTEROL
  3. VITAMIN C [Concomitant]
     Active Substance: ASCORBIC ACID
     Indication: VITAMIN SUPPLEMENTATION
  4. HUMIRA [Suspect]
     Active Substance: ADALIMUMAB
     Indication: PSORIATIC ARTHROPATHY
     Route: 058
     Dates: start: 201802, end: 20180612
  5. HUMIRA [Suspect]
     Active Substance: ADALIMUMAB
     Indication: PSORIASIS

REACTIONS (11)
  - Hernia [Recovering/Resolving]
  - Speech disorder [Unknown]
  - Hernia perforation [Recovered/Resolved]
  - Impaired healing [Not Recovered/Not Resolved]
  - Dyspnoea [Recovering/Resolving]
  - Speech disorder [Not Recovered/Not Resolved]
  - Laryngeal injury [Unknown]
  - Laceration [Not Recovered/Not Resolved]
  - Pharyngitis [Recovering/Resolving]
  - Lung disorder [Recovering/Resolving]
  - Vocal cord disorder [Unknown]

NARRATIVE: CASE EVENT DATE: 2018
